FAERS Safety Report 18207137 (Version 1)
Quarter: 2020Q3

REPORT INFORMATION
  Report Type: Spontaneous
  Country: US (occurrence: US)
  Receive Date: 20200828
  Receipt Date: 20200828
  Transmission Date: 20201103
  Serious: No
  Sender: FDA-Public Use
  Company Number: US-BAYER-2020-180606

PATIENT
  Age: 84 Year
  Sex: Female

DRUGS (3)
  1. CLARITIN LIQUI?GELS [Suspect]
     Active Substance: LORATADINE
     Route: 048
     Dates: start: 20200826, end: 20200826
  2. VITAMINS NOS [Concomitant]
     Active Substance: VITAMINS
  3. CALCIUM [Concomitant]
     Active Substance: CALCIUM

REACTIONS (1)
  - Hangover [Unknown]
